FAERS Safety Report 12006462 (Version 5)
Quarter: 2016Q2

REPORT INFORMATION
  Report Type: Spontaneous
  Country: SE (occurrence: SE)
  Receive Date: 20160204
  Receipt Date: 20160513
  Transmission Date: 20160815
  Serious: Yes (Hospitalization)
  Sender: FDA-Public Use
  Company Number: SE-SA-2016SA016305

PATIENT
  Age: 60 Year
  Sex: Female

DRUGS (2)
  1. ARAVA [Suspect]
     Active Substance: LEFLUNOMIDE
     Indication: ANKYLOSING SPONDYLITIS
     Route: 048
     Dates: start: 20151021, end: 20151114
  2. ARAVA [Suspect]
     Active Substance: LEFLUNOMIDE
     Indication: ANKYLOSING SPONDYLITIS
     Route: 048
     Dates: start: 20151021, end: 20151114

REACTIONS (11)
  - Myalgia [Unknown]
  - Joint swelling [Unknown]
  - Rash [Unknown]
  - Mouth ulceration [Unknown]
  - Skin fissures [Unknown]
  - Pyrexia [Unknown]
  - C-reactive protein increased [Recovering/Resolving]
  - Pustular psoriasis [Unknown]
  - Psoriasis [Not Recovered/Not Resolved]
  - Tongue geographic [Unknown]
  - Fatigue [Unknown]

NARRATIVE: CASE EVENT DATE: 201511
